FAERS Safety Report 17128347 (Version 1)
Quarter: 2019Q4

REPORT INFORMATION
  Report Type: Spontaneous
  Country: US (occurrence: US)
  Receive Date: 20191209
  Receipt Date: 20191209
  Transmission Date: 20200122
  Serious: No
  Sender: FDA-Public Use
  Company Number: US-UCBSA-2017003668

PATIENT
  Age: 62 Year
  Sex: Male
  Weight: 84 kg

DRUGS (2)
  1. VIMPAT [Suspect]
     Active Substance: LACOSAMIDE
     Indication: BACK PAIN
  2. VIMPAT [Suspect]
     Active Substance: LACOSAMIDE
     Indication: NECK PAIN
     Dosage: 100 MG, 2X/DAY (BID)
     Route: 048
     Dates: start: 201610

REACTIONS (2)
  - Contusion [Recovering/Resolving]
  - Off label use [Unknown]

NARRATIVE: CASE EVENT DATE: 201612
